FAERS Safety Report 8890172 (Version 1)
Quarter: 2012Q4

REPORT INFORMATION
  Report Type: 
  Country: CA (occurrence: CA)
  Receive Date: 20121106
  Receipt Date: 20121106
  Transmission Date: 20130627
  Serious: Yes (Other)
  Sender: FDA-Public Use
  Company Number: PHHY2008CA00832

PATIENT
  Sex: Female
  Weight: 110 kg

DRUGS (7)
  1. ZOMETA [Suspect]
     Indication: BREAST CANCER
     Dosage: 4 mg, QMO
     Dates: start: 20060310, end: 20080301
  2. DILAUDID [Concomitant]
     Dosage: 3 tablets q 4 hrs
     Route: 048
  3. DURAGESIC [Concomitant]
     Dosage: 100 ug, QOD
     Route: 048
  4. AROMASIN [Concomitant]
  5. ATENOLOL [Concomitant]
     Indication: HYPERTENSION
  6. CLONAZEPAM [Concomitant]
  7. METOCLOPRAMIDE [Concomitant]

REACTIONS (16)
  - Neoplasm progression [Unknown]
  - Malignant neoplasm progression [Unknown]
  - Pain [Not Recovered/Not Resolved]
  - Chest pain [Unknown]
  - Pain in extremity [Unknown]
  - Back pain [Unknown]
  - Bone marrow disorder [Unknown]
  - Fatigue [Unknown]
  - Bursitis [Unknown]
  - Asthenia [Unknown]
  - Decreased appetite [Unknown]
  - Bedridden [Unknown]
  - Cystitis [Unknown]
  - Bladder pain [Unknown]
  - Blood creatinine decreased [Unknown]
  - Infusion site reaction [Unknown]
